FAERS Safety Report 25887298 (Version 1)
Quarter: 2025Q4

REPORT INFORMATION
  Report Type: Spontaneous
  Country: US (occurrence: US)
  Receive Date: 20251006
  Receipt Date: 20251006
  Transmission Date: 20260118
  Serious: No
  Sender: ELI LILLY AND COMPANY
  Company Number: US-ELI_LILLY_AND_COMPANY-US202509029219

PATIENT
  Age: 69 Year
  Sex: Male

DRUGS (2)
  1. EMGALITY [Suspect]
     Active Substance: GALCANEZUMAB-GNLM
     Indication: Headache
     Dosage: 1 DEVICE AT FIRST DOSE
     Route: 065
     Dates: start: 202503
  2. EMGALITY [Suspect]
     Active Substance: GALCANEZUMAB-GNLM
     Dosage: 1 DEVICE AT SECOND DOSE (AFTER A MONTH)
     Route: 065
     Dates: start: 202504

REACTIONS (1)
  - Incorrect dose administered [Unknown]
